FAERS Safety Report 9760367 (Version 2)
Quarter: 2015Q3

REPORT INFORMATION
  Report Type: Spontaneous
  Country: US (occurrence: US)
  Receive Date: 20131216
  Receipt Date: 20150806
  Transmission Date: 20151125
  Serious: No
  Sender: FDA-Public Use
  Company Number: US-GILEAD-2010-0029410

PATIENT
  Age: 75 Year
  Sex: Female
  Weight: 73.48 kg

DRUGS (18)
  1. PREDNISONE. [Concomitant]
     Active Substance: PREDNISONE
  2. FUROSEMIDE. [Concomitant]
     Active Substance: FUROSEMIDE
  3. FLAXSEED [Concomitant]
     Active Substance: FLAX SEED
  4. OXYGEN. [Concomitant]
     Active Substance: OXYGEN
  5. SPIRONOLACTONE. [Concomitant]
     Active Substance: SPIRONOLACTONE
  6. PARACETAMOL/HYDROCODONE BITARTRATE [Concomitant]
  7. OMEPRAZOLE. [Concomitant]
     Active Substance: OMEPRAZOLE
  8. VITAMIN D [Concomitant]
     Active Substance: CHOLECALCIFEROL
  9. POTASSIUM [Concomitant]
     Active Substance: POTASSIUM
  10. NEXIUM [Concomitant]
     Active Substance: ESOMEPRAZOLE MAGNESIUM
  11. TEA [Concomitant]
     Active Substance: TEA LEAF
  12. LETAIRIS [Suspect]
     Active Substance: AMBRISENTAN
     Indication: PULMONARY ARTERIAL HYPERTENSION
     Route: 048
     Dates: start: 20080321
  13. AVAPRO [Concomitant]
     Active Substance: IRBESARTAN
  14. COD LIVER OIL [Concomitant]
     Active Substance: COD LIVER OIL
  15. CO ENZYME Q10 [Concomitant]
  16. MAGNESIUM [Concomitant]
     Active Substance: MAGNESIUM
  17. METOLAZONE. [Concomitant]
     Active Substance: METOLAZONE
  18. DILTIAZEM HYDROCHLORIDE EXTENDED RELEASE [Concomitant]
     Active Substance: DILTIAZEM HYDROCHLORIDE

REACTIONS (1)
  - Blister [Unknown]
